FAERS Safety Report 25005709 (Version 1)
Quarter: 2025Q1

REPORT INFORMATION
  Report Type: Spontaneous
  Country: US (occurrence: None)
  Receive Date: 20250224
  Receipt Date: 20250224
  Transmission Date: 20250408
  Serious: Yes (Life-Threatening)
  Sender: FDA-CTU
  Company Number: None

PATIENT
  Age: 47 Year
  Weight: 89 kg

DRUGS (3)
  1. HALOPERIDOL [Suspect]
     Active Substance: HALOPERIDOL
     Indication: Agitation
     Route: 042
     Dates: start: 20250219, end: 20250220
  2. OXYCODONE [Suspect]
     Active Substance: OXYCODONE
  3. OXYCODONE [Suspect]
     Active Substance: OXYCODONE

REACTIONS (2)
  - Cardiac arrest [None]
  - Torsade de pointes [None]

NARRATIVE: CASE EVENT DATE: 20250220
